FAERS Safety Report 6647772-3 (Version None)
Quarter: 2010Q1

REPORT INFORMATION
  Report Type: 
  Country: None (occurrence: None)
  Receive Date: 20100324
  Receipt Date: 20100316
  Transmission Date: 20100710
  Serious: Yes (Hospitalization, Other)
  Sender: FDA-Public Use
  Company Number: US-BIOGENIDEC-2010BI003928

PATIENT
  Age: 54 Year
  Sex: Female
  Weight: 70 kg

DRUGS (3)
  1. AVONEX [Suspect]
     Indication: MULTIPLE SCLEROSIS
     Route: 030
     Dates: start: 20030801
  2. AVONEX [Suspect]
     Route: 030
  3. PROPRANOLOL [Concomitant]
     Indication: HYPERTENSION
     Route: 048

REACTIONS (7)
  - ALOPECIA [None]
  - HEART RATE INCREASED [None]
  - HEART VALVE INCOMPETENCE [None]
  - HOT FLUSH [None]
  - HYPERTENSION [None]
  - NIGHT SWEATS [None]
  - PALPITATIONS [None]
